FAERS Safety Report 23457161 (Version 1)
Quarter: 2024Q1

REPORT INFORMATION
  Report Type: Spontaneous
  Country: CN (occurrence: CN)
  Receive Date: 20240130
  Receipt Date: 20240130
  Transmission Date: 20240410
  Serious: Yes (Other)
  Sender: FDA-Public Use
  Company Number: CN-002147023-NVSC2024CN015768

PATIENT
  Age: 18 Year
  Sex: Male
  Weight: 89 kg

DRUGS (1)
  1. TOBRAMYCIN [Suspect]
     Active Substance: TOBRAMYCIN
     Indication: Vitritis
     Dosage: 0.05 ML, TID
     Route: 047
     Dates: start: 20240116, end: 20240117

REACTIONS (9)
  - Eyelid oedema [Recovering/Resolving]
  - Erythema [Recovering/Resolving]
  - Lip swelling [Recovering/Resolving]
  - Dyspnoea [Recovering/Resolving]
  - Laryngeal oedema [Recovering/Resolving]
  - Conjunctival oedema [Unknown]
  - Speech disorder [Recovering/Resolving]
  - Eye pruritus [Unknown]
  - Blood pressure increased [Unknown]

NARRATIVE: CASE EVENT DATE: 20240117
